FAERS Safety Report 10045488 (Version 1)
Quarter: 2014Q1

REPORT INFORMATION
  Report Type: Spontaneous
  Country: BR (occurrence: BR)
  Receive Date: 20140328
  Receipt Date: 20140328
  Transmission Date: 20141002
  Serious: Yes (Hospitalization, Other)
  Sender: FDA-Public Use
  Company Number: BR-ABBVIE-14P-020-1215856-00

PATIENT
  Age: 24 Year
  Sex: Female
  Weight: 42 kg

DRUGS (6)
  1. HUMIRA [Suspect]
     Indication: ANKYLOSING SPONDYLITIS
     Route: 058
     Dates: start: 2013
  2. CLONAZEPAM [Concomitant]
     Indication: STRESS
  3. MIRTAZAPINE [Concomitant]
     Indication: STRESS
  4. DEPO-PROVERA [Concomitant]
     Indication: MENSTRUAL CYCLE MANAGEMENT
     Dates: start: 201306
  5. RAZAPINA [Concomitant]
     Indication: CONVULSION
  6. CARBAMAZEPINE [Concomitant]
     Indication: CONVULSION

REACTIONS (9)
  - Epilepsy [Unknown]
  - Convulsion [Recovering/Resolving]
  - Pain in extremity [Recovered/Resolved]
  - Musculoskeletal pain [Recovered/Resolved]
  - Borderline personality disorder [Unknown]
  - Swelling [Recovered/Resolved]
  - Pruritus [Recovered/Resolved]
  - Hypotension [Unknown]
  - Syncope [Unknown]
